FAERS Safety Report 13048895 (Version 1)
Quarter: 2016Q4

REPORT INFORMATION
  Report Type: Report from Study
  Country: None (occurrence: US)
  Receive Date: 20161221
  Receipt Date: 20161221
  Transmission Date: 20170207
  Serious: Yes (Hospitalization, Other)
  Sender: FDA-Public Use
  Company Number: US-ABBVIE-16K-163-1808875-00

PATIENT
  Age: 54 Year
  Sex: Female
  Weight: 45.4 kg

DRUGS (12)
  1. HUMIRA [Suspect]
     Active Substance: ADALIMUMAB
     Dosage: FOUR WEEKS AFTER 160 MG DOSE
     Route: 058
     Dates: start: 2014, end: 201611
  2. AMLODIPINE [Concomitant]
     Active Substance: AMLODIPINE BESYLATE
     Indication: HYPERTENSION
  3. METOPROLOL. [Concomitant]
     Active Substance: METOPROLOL
     Indication: HYPERTENSION
  4. PRAVASTATIN. [Concomitant]
     Active Substance: PRAVASTATIN
     Indication: BLOOD CHOLESTEROL INCREASED
  5. IRON [Concomitant]
     Active Substance: IRON
     Indication: IRON DEFICIENCY
  6. DICYCLOMINE [Concomitant]
     Active Substance: DICYCLOMINE HYDROCHLORIDE
     Indication: ABDOMINAL PAIN
  7. EFFEXOR [Concomitant]
     Active Substance: VENLAFAXINE HYDROCHLORIDE
     Indication: DEPRESSION
  8. OMEPRAZOLE. [Concomitant]
     Active Substance: OMEPRAZOLE
     Indication: GASTROOESOPHAGEAL REFLUX DISEASE
  9. HUMIRA [Suspect]
     Active Substance: ADALIMUMAB
     Indication: COLITIS ULCERATIVE
     Route: 058
     Dates: start: 201407, end: 201407
  10. LISINOPRIL. [Concomitant]
     Active Substance: LISINOPRIL
     Indication: HYPERTENSION
  11. CLONAZEPAM. [Concomitant]
     Active Substance: CLONAZEPAM
     Indication: INSOMNIA
  12. HUMIRA [Suspect]
     Active Substance: ADALIMUMAB
     Dosage: TWO WEEKS AFTER 160 MG DOSE
     Route: 058
     Dates: start: 2014, end: 2014

REACTIONS (19)
  - Colitis ulcerative [Recovered/Resolved]
  - Colitis ulcerative [Recovered/Resolved]
  - Asthenia [Not Recovered/Not Resolved]
  - Colitis ulcerative [Recovered/Resolved]
  - Intervertebral disc degeneration [Not Recovered/Not Resolved]
  - Cystitis [Recovered/Resolved]
  - Escherichia urinary tract infection [Recovered/Resolved]
  - Dehydration [Not Recovered/Not Resolved]
  - Musculoskeletal pain [Recovered/Resolved]
  - Colitis ulcerative [Recovered/Resolved]
  - Dehydration [Recovered/Resolved]
  - Neck pain [Recovered/Resolved]
  - Acute kidney injury [Recovered/Resolved]
  - Gastrointestinal wall thickening [Not Recovered/Not Resolved]
  - Nerve root compression [Recovered/Resolved]
  - Hypoaesthesia [Recovered/Resolved]
  - Colitis ulcerative [Recovered/Resolved]
  - Cystitis [Recovered/Resolved]
  - Dehydration [Recovered/Resolved]

NARRATIVE: CASE EVENT DATE: 2014
